FAERS Safety Report 17744207 (Version 1)
Quarter: 2020Q2

REPORT INFORMATION
  Report Type: Spontaneous
  Country: DE (occurrence: DE)
  Receive Date: 20200504
  Receipt Date: 20200504
  Transmission Date: 20200714
  Serious: Yes (Other)
  Sender: FDA-Public Use
  Company Number: DE-AMGEN-DEUSP2020069414

PATIENT
  Age: 36 Year
  Sex: Male

DRUGS (3)
  1. LEFLUNOMIDE. [Suspect]
     Active Substance: LEFLUNOMIDE
     Indication: GRANULOMATOSIS WITH POLYANGIITIS
     Dosage: 30 MG, 1X/DAY (QD)
     Route: 065
  2. PREDNISOLONE. [Suspect]
     Active Substance: PREDNISOLONE
     Indication: GRANULOMATOSIS WITH POLYANGIITIS
     Dosage: 17 MG, 1X/DAY (QD)
     Route: 065
  3. ENBREL [Suspect]
     Active Substance: ETANERCEPT
     Indication: GRANULOMATOSIS WITH POLYANGIITIS
     Dosage: 25 MG, 2X/DAY (BID)
     Route: 065

REACTIONS (6)
  - Inflammation [Unknown]
  - Off label use [Unknown]
  - Laryngeal stenosis [Unknown]
  - Product use in unapproved indication [Unknown]
  - Dyspnoea [Unknown]
  - Treatment failure [Unknown]
